FAERS Safety Report 7898052-X (Version None)
Quarter: 2011Q4

REPORT INFORMATION
  Report Type: 
  Country: None (occurrence: None)
  Receive Date: 20111107
  Receipt Date: 20111107
  Transmission Date: 20120403
  Serious: Yes (Disabling)
  Sender: FDA-Public Use
  Company Number: None

PATIENT
  Age: 48 Year
  Sex: Female
  Weight: 90.718 kg

DRUGS (2)
  1. GEODON [Suspect]
     Indication: DEPRESSION
     Dosage: 25+ MG ?
     Route: 048
     Dates: start: 20050325, end: 20110905
  2. ABILIFY [Concomitant]
     Indication: DEPRESSION
     Dosage: 5 MG
     Route: 048
     Dates: start: 20111010, end: 20111107

REACTIONS (3)
  - DEPRESSION SUICIDAL [None]
  - MUSCLE SPASMS [None]
  - AMNESIA [None]
